FAERS Safety Report 7167053-1 (Version None)
Quarter: 2010Q4

REPORT INFORMATION
  Report Type: 
  Country: None (occurrence: None)
  Receive Date: 20101216
  Receipt Date: 20101208
  Transmission Date: 20110411
  Serious: Yes (Other)
  Sender: FDA-Public Use
  Company Number: B0689350A

PATIENT
  Age: 65 Year
  Sex: Female

DRUGS (1)
  1. COMBIVIR [Suspect]

REACTIONS (4)
  - DIZZINESS [None]
  - HALLUCINATION [None]
  - HEADACHE [None]
  - NIGHTMARE [None]
